FAERS Safety Report 19187223 (Version 1)
Quarter: 2021Q2

REPORT INFORMATION
  Report Type: Spontaneous
  Country: IT (occurrence: IT)
  Receive Date: 20210428
  Receipt Date: 20210428
  Transmission Date: 20210717
  Serious: Yes (Life-Threatening, Other)
  Sender: FDA-Public Use
  Company Number: IT-CELLTRION INC.-2021IT005566

PATIENT

DRUGS (2)
  1. TRUXIMA [Suspect]
     Active Substance: RITUXIMAB-ABBS
     Indication: NON-HODGKIN^S LYMPHOMA
     Dosage: 375 MG/M2
  2. TRUXIMA [Suspect]
     Active Substance: RITUXIMAB-ABBS
     Indication: CHRONIC LYMPHOCYTIC LEUKAEMIA

REACTIONS (21)
  - Thrombocytopenia [Unknown]
  - Nasal congestion [Unknown]
  - Paraesthesia [Unknown]
  - Cough [Unknown]
  - Therapy partial responder [Unknown]
  - Tremor [Unknown]
  - Disease progression [Unknown]
  - Hepatotoxicity [Unknown]
  - Febrile neutropenia [Unknown]
  - Rash [Unknown]
  - Adverse event [Unknown]
  - Neutropenia [Unknown]
  - Throat irritation [Unknown]
  - Back pain [Unknown]
  - Anaemia [Unknown]
  - Nausea [Unknown]
  - Pyrexia [Unknown]
  - Urinary tract infection [Unknown]
  - Dyspnoea [Unknown]
  - Constipation [Unknown]
  - Headache [Unknown]
